FAERS Safety Report 5693842-6 (Version None)
Quarter: 2008Q2

REPORT INFORMATION
  Report Type: 
  Country: None (occurrence: None)
  Receive Date: 20080403
  Receipt Date: 20080322
  Transmission Date: 20081010
  Serious: Yes (Other)
  Sender: FDA-Public Use
  Company Number: US-PFIZER INC-2008012147

PATIENT
  Sex: Male
  Weight: 79.4 kg

DRUGS (20)
  1. GEODON [Suspect]
     Indication: AGITATION
     Route: 030
     Dates: start: 20071222, end: 20071223
  2. GEODON [Suspect]
     Indication: CEREBROVASCULAR ACCIDENT
  3. GEODON [Suspect]
     Indication: HYPERTENSIVE ENCEPHALOPATHY
  4. ZYPREXA [Suspect]
     Dosage: DAILY DOSE:7.5MG
     Route: 048
  5. ANTIHYPERTENSIVES [Concomitant]
  6. ATIVAN [Concomitant]
  7. COLACE [Concomitant]
  8. DEPAKOTE [Concomitant]
  9. ASPIRIN [Concomitant]
  10. FLOMAX ^CSL^ [Concomitant]
  11. HYDROCHLOROTHIAZIDE [Concomitant]
  12. KLONOPIN [Concomitant]
  13. LISINOPRIL [Concomitant]
  14. MINOXIDIL [Concomitant]
  15. METOPROLOL TARTRATE [Concomitant]
  16. POTASSIUM CHLORIDE [Concomitant]
  17. AMLODIPINE [Concomitant]
  18. FAMOTIDINE [Concomitant]
  19. TEGRETOL [Concomitant]
  20. IBUPROFEN [Concomitant]

REACTIONS (7)
  - ASPARTATE AMINOTRANSFERASE INCREASED [None]
  - BLOOD CREATININE INCREASED [None]
  - CSF PROTEIN INCREASED [None]
  - HAEMATOCRIT DECREASED [None]
  - NEUROLEPTIC MALIGNANT SYNDROME [None]
  - PYREXIA [None]
  - SEPSIS [None]
